FAERS Safety Report 7240590-7 (Version None)
Quarter: 2011Q1

REPORT INFORMATION
  Report Type: 
  Country: None (occurrence: None)
  Receive Date: 20110124
  Receipt Date: 20110112
  Transmission Date: 20110831
  Serious: Yes (Hospitalization, Other)
  Sender: FDA-Public Use
  Company Number: FR-NOVOPROD-321683

PATIENT
  Age: 60 Year
  Sex: Female

DRUGS (2)
  1. VICTOZA [Suspect]
     Indication: TYPE 2 DIABETES MELLITUS
     Dosage: UK
     Route: 065
  2. ORAL ANTIDIABETICS [Concomitant]

REACTIONS (2)
  - ANTI-GAD ANTIBODY POSITIVE [None]
  - KETOACIDOSIS [None]
